FAERS Safety Report 4285934-3 (Version None)
Quarter: 2004Q1

REPORT INFORMATION
  Report Type: 
  Country: None (occurrence: None)
  Receive Date: 20040205
  Receipt Date: 20031117
  Transmission Date: 20041129
  Serious: Yes (Life-Threatening, Hospitalization)
  Sender: FDA-Public Use
  Company Number: DE-GLAXOSMITHKLINE-D0042523A

PATIENT
  Age: 76 Year
  Sex: Female

DRUGS (1)
  1. LEUKERAN [Suspect]
     Indication: NON-HODGKIN'S LYMPHOMA
     Dosage: 5MGK PER DAY
     Route: 048

REACTIONS (4)
  - ANOREXIA [None]
  - BONE MARROW DISORDER [None]
  - LEUKOPENIA [None]
  - NAUSEA [None]
